FAERS Safety Report 4597870-3 (Version None)
Quarter: 2005Q1

REPORT INFORMATION
  Report Type: 
  Country: None (occurrence: None)
  Receive Date: 20050125
  Receipt Date: 20040909
  Transmission Date: 20050727
  Serious: No
  Sender: FDA-Public Use
  Company Number: USA040876150

PATIENT
  Age: 87 Year
  Sex: Female

DRUGS (4)
  1. FORTEO [Suspect]
     Dates: start: 20040810, end: 20040824
  2. DICYCLOMINE [Concomitant]
  3. OSCAL (CALCIUM CARBONATE) [Concomitant]
  4. VITAMINS [Concomitant]

REACTIONS (6)
  - DIARRHOEA [None]
  - FEELING ABNORMAL [None]
  - HOT FLUSH [None]
  - NAUSEA [None]
  - TREMOR [None]
  - VOMITING [None]
